FAERS Safety Report 8102518-7 (Version None)
Quarter: 2012Q1

REPORT INFORMATION
  Report Type: 
  Country: None (occurrence: None)
  Receive Date: 20120201
  Receipt Date: 20120124
  Transmission Date: 20120608
  Serious: Yes (Other)
  Sender: FDA-Public Use
  Company Number: US-SANOFI-AVENTIS-2012SA005014

PATIENT
  Age: 76 Year
  Sex: Male

DRUGS (4)
  1. LANTUS [Suspect]
     Dates: start: 20090101
  2. APIDRA [Suspect]
     Dosage: ^4-5, 10-14, 9-14^
     Route: 058
     Dates: start: 20110101
  3. SOLOSTAR [Suspect]
     Dates: start: 20110101
  4. SOLOSTAR [Suspect]

REACTIONS (3)
  - INJECTION SITE HAEMORRHAGE [None]
  - CATARACT [None]
  - INJECTION SITE HAEMATOMA [None]
